FAERS Safety Report 13355457 (Version 1)
Quarter: 2017Q1

REPORT INFORMATION
  Report Type: Spontaneous
  Country: FR (occurrence: FR)
  Receive Date: 20170321
  Receipt Date: 20170321
  Transmission Date: 20170429
  Serious: Yes (Hospitalization)
  Sender: FDA-Public Use
  Company Number: FR-PFIZER INC-2017112349

PATIENT
  Age: 15 Year
  Sex: Male

DRUGS (8)
  1. RHINOFLUIMUCIL [Concomitant]
     Active Substance: ACETYLCYSTEINE\BENZALKONIUM CHLORIDE\TUAMINOHEPTANE SULFATE
     Indication: CATARRH
  2. MELATONINE [Concomitant]
     Active Substance: MELATONIN
  3. LYSOPAINE /00316601/ [Concomitant]
     Indication: CATARRH
  4. STREPSILS LIDOCAINE [Concomitant]
     Indication: CATARRH
  5. CATAPRESSAN /00171101/ [Concomitant]
     Active Substance: CLONIDINE
  6. RHINADVIL [Suspect]
     Active Substance: IBUPROFEN\PSEUDOEPHEDRINE HYDROCHLORIDE
     Indication: CATARRH
     Dosage: UNK
     Route: 048
     Dates: start: 201701, end: 201701
  7. QUASYM [Concomitant]
     Active Substance: METHYLPHENIDATE HYDROCHLORIDE
  8. RITALINE [Concomitant]
     Active Substance: METHYLPHENIDATE HYDROCHLORIDE

REACTIONS (1)
  - Drug reaction with eosinophilia and systemic symptoms [Recovered/Resolved]

NARRATIVE: CASE EVENT DATE: 20170125
